FAERS Safety Report 8491292-0 (Version None)
Quarter: 2012Q3

REPORT INFORMATION
  Report Type: 
  Country: None (occurrence: None)
  Receive Date: 20120706
  Receipt Date: 20120704
  Transmission Date: 20120928
  Serious: Yes (Other)
  Sender: FDA-Public Use
  Company Number: PHHY2012DE041208

PATIENT
  Sex: Male

DRUGS (3)
  1. ZOMETA [Suspect]
     Indication: PROSTATE CANCER METASTATIC
     Dosage: 4 MG/100ML, EVERY 4 WEEKS
     Route: 042
     Dates: start: 20110101
  2. LEUPROLIDE ACETATE [Concomitant]
     Dosage: UNK UKN, UNK
     Dates: start: 20060101
  3. ZYTIGA [Concomitant]
     Dosage: 1 G/DAY
     Route: 048
     Dates: start: 20120301

REACTIONS (1)
  - OSTEONECROSIS OF JAW [None]
